FAERS Safety Report 7413602-5 (Version None)
Quarter: 2011Q2

REPORT INFORMATION
  Report Type: 
  Country: None (occurrence: None)
  Receive Date: 20110413
  Receipt Date: 20110407
  Transmission Date: 20111010
  Serious: Yes (Death)
  Sender: FDA-Public Use
  Company Number: AU-AMGEN-AUSCT2011018617

PATIENT
  Age: 82 Year
  Sex: Male

DRUGS (15)
  1. RITUXIMAB [Concomitant]
     Indication: DIFFUSE LARGE B-CELL LYMPHOMA
     Dosage: 770 MG, Q3WK
     Route: 042
     Dates: start: 20080226
  2. SOMAC [Concomitant]
     Dosage: UNK
     Dates: start: 20090101, end: 20110302
  3. DOXORUBICIN [Concomitant]
     Indication: DIFFUSE LARGE B-CELL LYMPHOMA
     Route: 065
  4. DIGOXIN [Concomitant]
     Dosage: UNK
     Dates: start: 20090101, end: 20110302
  5. CYCLOPHOSPHAMIDE [Concomitant]
     Indication: DIFFUSE LARGE B-CELL LYMPHOMA
     Route: 065
  6. INDERAL [Concomitant]
     Dosage: UNK
     Dates: start: 20110101, end: 20110302
  7. DIAMICRON [Concomitant]
     Dosage: UNK
     Dates: start: 20100101, end: 20110302
  8. PRAVACHOL [Concomitant]
     Dosage: UNK
     Dates: start: 20090101, end: 20110302
  9. PEGFILGRASTIM [Suspect]
     Indication: DIFFUSE LARGE B-CELL LYMPHOMA
     Dosage: 6 A?G, UNK
     Route: 058
     Dates: start: 20080226, end: 20080613
  10. IFOSFAMIDE [Concomitant]
     Indication: DIFFUSE LARGE B-CELL LYMPHOMA
     Dosage: 2700 MG, Q3WK
     Route: 042
     Dates: start: 20080226
  11. MINAX [Concomitant]
     Dosage: UNK
     Dates: start: 20090101, end: 20110302
  12. ETOPOSIDE [Concomitant]
     Indication: DIFFUSE LARGE B-CELL LYMPHOMA
     Dosage: 480 MG, Q3WK
     Route: 042
     Dates: start: 20080226
  13. VINCRISTINE [Concomitant]
     Indication: DIFFUSE LARGE B-CELL LYMPHOMA
     Route: 065
  14. PREDNISONE [Concomitant]
     Indication: DIFFUSE LARGE B-CELL LYMPHOMA
     Route: 065
  15. WARFARIN [Concomitant]
     Dosage: UNK
     Dates: start: 20090101, end: 20110101

REACTIONS (1)
  - MYELODYSPLASTIC SYNDROME [None]
